FAERS Safety Report 5277450-7 (Version None)
Quarter: 2007Q1

REPORT INFORMATION
  Report Type: 
  Country: None (occurrence: None)
  Receive Date: 20061213
  Receipt Date: 20060417
  Transmission Date: 20070707
  Serious: No
  Sender: FDA-Public Use
  Company Number: 2006UW06495

PATIENT
  Age: 55 Year
  Sex: Female
  Weight: 58.967 kg

DRUGS (7)
  1. SEROQUEL [Suspect]
     Indication: SCHIZOAFFECTIVE DISORDER
     Dosage: 650 MG DAILY PO
     Route: 048
     Dates: start: 20051101, end: 20060414
  2. PROZAC [Concomitant]
  3. CLONAPIN [Concomitant]
  4. NEXIUM [Concomitant]
  5. SYNTHROID [Concomitant]
  6. PROMETHAZINE [Concomitant]
  7. ZYPREXA [Concomitant]

REACTIONS (1)
  - PANCREATITIS [None]
